FAERS Safety Report 6638191-4 (Version None)
Quarter: 2010Q1

REPORT INFORMATION
  Report Type: 
  Country: None (occurrence: None)
  Receive Date: 20100312
  Receipt Date: 20100301
  Transmission Date: 20100710
  Serious: Yes (Death)
  Sender: FDA-Public Use
  Company Number: 232106J10USA

PATIENT
  Age: 55 Year
  Sex: Male

DRUGS (1)
  1. REBIF [Suspect]
     Indication: MULTIPLE SCLEROSIS
     Dates: end: 20080101

REACTIONS (3)
  - DISEASE PROGRESSION [None]
  - INJECTION SITE PAIN [None]
  - MULTIPLE SCLEROSIS [None]
